FAERS Safety Report 9075455 (Version 1)
Quarter: 2013Q1

REPORT INFORMATION
  Report Type: Report from Study
  Country: US (occurrence: US)
  Receive Date: 20130128
  Receipt Date: 20130128
  Transmission Date: 20140127
  Serious: No
  Sender: FDA-Public Use
  Company Number: US-ABBOTT-12P-163-0890666-00

PATIENT
  Age: 56 Year
  Sex: Female

DRUGS (7)
  1. HUMIRA 40 MG/0.8 ML PEN [Suspect]
     Indication: RHEUMATOID ARTHRITIS
     Dates: start: 20111028, end: 20120105
  2. NAPROXEN [Concomitant]
     Indication: INFLAMMATION
  3. ZOFRAN [Concomitant]
     Indication: NAUSEA
     Dosage: THREE TIMES A DAY AS NEEDED
  4. METHOTREXATE [Concomitant]
     Indication: ARTHRITIS
     Dosage: 10 MG WEEKLY
  5. METHOTREXATE [Concomitant]
     Indication: SWELLING
  6. FOLIC ACID [Concomitant]
     Indication: PRODUCT USED FOR UNKNOWN INDICATION
     Dosage: DAILY, EXCEPT DAYS TAKING METHOTREXATE
  7. SUBOXONE [Concomitant]
     Indication: PAIN

REACTIONS (9)
  - Ear pain [Recovering/Resolving]
  - Oropharyngeal pain [Unknown]
  - Ear infection [Recovering/Resolving]
  - Pain [Unknown]
  - Arthralgia [Unknown]
  - Pain [Unknown]
  - Drug dose omission [Unknown]
  - Abscess [Recovering/Resolving]
  - Cerumen impaction [Recovering/Resolving]
